FAERS Safety Report 4906530-8 (Version None)
Quarter: 2006Q1

REPORT INFORMATION
  Report Type: 
  Country: None (occurrence: None)
  Receive Date: 20060206
  Receipt Date: 20060126
  Transmission Date: 20060701
  Serious: Yes (Other)
  Sender: FDA-Public Use
  Company Number: 200610109BYL

PATIENT
  Age: 86 Year
  Sex: Female

DRUGS (1)
  1. AVELOX [Suspect]
     Dosage: 400 MG, QD, ORAL
     Route: 048
     Dates: start: 20060116, end: 20060119

REACTIONS (2)
  - OEDEMA [None]
  - PLEURAL EFFUSION [None]
